FAERS Safety Report 13155021 (Version 8)
Quarter: 2019Q3

REPORT INFORMATION
  Report Type: Spontaneous
  Country: US (occurrence: US)
  Receive Date: 20170126
  Receipt Date: 20190710
  Transmission Date: 20191004
  Serious: Yes (Hospitalization, Other)
  Sender: FDA-Public Use
  Company Number: US-PFIZER INC-2015205004

PATIENT
  Age: 72 Year
  Sex: Male
  Weight: 86 kg

DRUGS (3)
  1. AROMASIN [Suspect]
     Active Substance: EXEMESTANE
     Dosage: 25 MG, UNK
     Dates: start: 201712
  2. EXEMESTANE. [Suspect]
     Active Substance: EXEMESTANE
     Indication: PROSTATE CANCER
     Dosage: UNK
  3. AROMASIN [Suspect]
     Active Substance: EXEMESTANE
     Indication: PROSTATE CANCER
     Dosage: 25 MG, 1X/DAY
     Route: 048
     Dates: start: 201504

REACTIONS (5)
  - Nasopharyngitis [Unknown]
  - Product use in unapproved indication [Unknown]
  - Off label use [Unknown]
  - Road traffic accident [Recovered/Resolved with Sequelae]
  - Hip surgery [Recovered/Resolved]

NARRATIVE: CASE EVENT DATE: 201504
